FAERS Safety Report 19428110 (Version 3)
Quarter: 2021Q3

REPORT INFORMATION
  Report Type: Spontaneous
  Country: US (occurrence: US)
  Receive Date: 20210617
  Receipt Date: 20210823
  Transmission Date: 20211014
  Serious: No
  Sender: FDA-Public Use
  Company Number: US-SA-2021SA199757

PATIENT
  Age: 42 Year
  Sex: Male

DRUGS (1)
  1. DUPIXENT [Suspect]
     Active Substance: DUPILUMAB
     Indication: DERMATITIS ATOPIC
     Dosage: 300 MG, QOW
     Route: 058
     Dates: start: 20210406

REACTIONS (4)
  - Dry skin [Unknown]
  - Skin laceration [Unknown]
  - Hyperaesthesia [Unknown]
  - Skin atrophy [Unknown]

NARRATIVE: CASE EVENT DATE: 2021
